FAERS Safety Report 16161195 (Version 2)
Quarter: 2025Q3

REPORT INFORMATION
  Report Type: Report from Study
  Country: EU (occurrence: EU)
  Receive Date: 20190405
  Receipt Date: 20250716
  Transmission Date: 20251021
  Serious: Yes (Hospitalization, Other)
  Sender: AUROBINDO
  Company Number: EU-AUROBINDO-AUR-APL-2019-012076

PATIENT
  Age: 69 Year
  Sex: Male

DRUGS (11)
  1. RIBAVIRIN [Interacting]
     Active Substance: RIBAVIRIN
     Indication: Hepatitis C virus test positive
     Dosage: 800 MILLIGRAM, ONCE A DAY
     Route: 065
     Dates: end: 201507
  2. RIBAVIRIN [Interacting]
     Active Substance: RIBAVIRIN
     Route: 065
     Dates: start: 201504
  3. FLECAINIDE [Interacting]
     Active Substance: FLECAINIDE
     Indication: Atrial fibrillation
     Route: 065
     Dates: start: 2012
  4. OMBITASVIR\PARITAPREVIR\RITONAVIR [Suspect]
     Active Substance: OMBITASVIR\PARITAPREVIR\RITONAVIR
     Indication: Hepatitis C
     Route: 065
     Dates: start: 201504
  5. DASABUVIR [Interacting]
     Active Substance: DASABUVIR
     Indication: Hepatitis C virus test positive
     Route: 065
     Dates: start: 201504
  6. PARITAPREVIR [Concomitant]
     Active Substance: PARITAPREVIR
     Indication: Hepatitis C virus test positive
     Route: 065
     Dates: start: 201504
  7. OMBITASVIR [Concomitant]
     Active Substance: OMBITASVIR
     Indication: Hepatitis C virus test positive
     Route: 065
     Dates: start: 201504
  8. RITONAVIR [Concomitant]
     Active Substance: RITONAVIR
     Indication: Hepatitis C virus test positive
     Route: 065
     Dates: start: 201504
  9. HYDROCHLOROTHIAZIDE [Concomitant]
     Active Substance: HYDROCHLOROTHIAZIDE
     Indication: Atrial fibrillation
     Route: 065
     Dates: start: 2012
  10. ASPIRIN [Concomitant]
     Active Substance: ASPIRIN
     Indication: Atrial fibrillation
     Route: 065
     Dates: start: 2012
  11. VALSARTAN [Concomitant]
     Active Substance: VALSARTAN
     Indication: Atrial fibrillation
     Route: 065
     Dates: start: 2012

REACTIONS (4)
  - Syncope [Unknown]
  - Bradycardia [Unknown]
  - Drug interaction [Unknown]
  - Anaemia [Unknown]

NARRATIVE: CASE EVENT DATE: 20150701
